FAERS Safety Report 5963300-X (Version None)
Quarter: 2008Q4

REPORT INFORMATION
  Report Type: 
  Country: None (occurrence: None)
  Receive Date: 20081121
  Receipt Date: 20081121
  Transmission Date: 20090506
  Serious: Yes (Life-Threatening, Disabling)
  Sender: FDA-Public Use
  Company Number: None

PATIENT
  Age: 34 Year
  Sex: Male
  Weight: 72.5755 kg

DRUGS (1)
  1. MIRAPEX [Suspect]
     Indication: RESTLESS LEGS SYNDROME
     Dosage: 2 DAY PO
     Route: 048
     Dates: start: 20060101, end: 20081113

REACTIONS (10)
  - ABNORMAL BEHAVIOUR [None]
  - COMPULSIONS [None]
  - CONDITION AGGRAVATED [None]
  - DEPRESSION [None]
  - ECONOMIC PROBLEM [None]
  - FEELING ABNORMAL [None]
  - GAMBLING [None]
  - INSOMNIA [None]
  - MENTAL DISORDER [None]
  - SUICIDAL IDEATION [None]
